FAERS Safety Report 10925308 (Version 1)
Quarter: 2015Q1

REPORT INFORMATION
  Report Type: Spontaneous
  Country: US (occurrence: US)
  Receive Date: 20150318
  Receipt Date: 20150318
  Transmission Date: 20150721
  Serious: No
  Sender: FDA-Public Use
  Company Number: US-PFIZER INC-2015090697

PATIENT
  Age: 45 Year
  Sex: Male
  Weight: 98 kg

DRUGS (1)
  1. ALAVERT ALLERGY [Suspect]
     Active Substance: LORATADINE
     Indication: ALLERGY TO ANIMAL
     Dosage: 10 MG, ONCE A DAY
     Route: 048
     Dates: start: 20150309

REACTIONS (2)
  - Erythema [Unknown]
  - Miosis [Not Recovered/Not Resolved]

NARRATIVE: CASE EVENT DATE: 201503
